FAERS Safety Report 18936692 (Version 1)
Quarter: 2021Q1

REPORT INFORMATION
  Report Type: Spontaneous
  Country: PK (occurrence: PK)
  Receive Date: 20210224
  Receipt Date: 20210224
  Transmission Date: 20210420
  Serious: Yes (Death)
  Sender: FDA-Public Use
  Company Number: PK-NOVOPROD-789337

PATIENT
  Age: 49 Year
  Sex: Male

DRUGS (1)
  1. NOVOMIX 30 FLEXPEN [Suspect]
     Active Substance: INSULIN ASPART
     Indication: TYPE 2 DIABETES MELLITUS
     Dosage: 60+40
     Route: 058
     Dates: start: 20180201, end: 20210108

REACTIONS (1)
  - Hepatitis C [Fatal]
